FAERS Safety Report 8664932 (Version 4)
Quarter: 2013Q4

REPORT INFORMATION
  Report Type: Report from Study
  Country: US (occurrence: US)
  Receive Date: 20120713
  Receipt Date: 20131031
  Transmission Date: 20140711
  Serious: Yes (Life-Threatening, Hospitalization)
  Sender: FDA-Public Use
  Company Number: US-MSD-1203USA00623

PATIENT
  Age: 51 Year
  Sex: Male
  Weight: 85.5 kg

DRUGS (8)
  1. VORINOSTAT-MYCOSIS FUNGOIDES [Suspect]
     Indication: GLIOBLASTOMA MULTIFORME
     Dosage: 300 MG, UNK
     Route: 048
     Dates: start: 20120227, end: 20120302
  2. VORINOSTAT-MYCOSIS FUNGOIDES [Suspect]
     Dosage: 300 MG, UNK
     Route: 048
     Dates: start: 20120319
  3. VORINOSTAT-MYCOSIS FUNGOIDES [Suspect]
     Dosage: 400 MG, QD
     Route: 048
     Dates: start: 20120521
  4. TEMOZOLOMIDE [Suspect]
     Indication: GLIOBLASTOMA MULTIFORME
     Dosage: 75 MG/M2, QD
     Route: 042
     Dates: start: 20120227
  5. TEMOZOLOMIDE [Suspect]
     Dosage: 150 MG/M2, QD
     Route: 048
     Dates: start: 20120521
  6. DEXAMETHASONE [Suspect]
     Route: 048
  7. MIRTAZAPINE [Suspect]
  8. OLANZAPINE [Suspect]

REACTIONS (2)
  - Suicidal ideation [Recovered/Resolved with Sequelae]
  - Depression [Not Recovered/Not Resolved]
